FAERS Safety Report 9380956 (Version 6)
Quarter: 2016Q2

REPORT INFORMATION
  Report Type: Report from Study
  Country: US (occurrence: US)
  Receive Date: 20130703
  Receipt Date: 20160622
  Transmission Date: 20160815
  Serious: Yes (Other)
  Sender: FDA-Public Use
  Company Number: US-ROCHE-1220255

PATIENT
  Age: 57 Year
  Sex: Male

DRUGS (9)
  1. PEGASYS [Suspect]
     Active Substance: PEGINTERFERON ALFA-2A
     Route: 058
  2. PEGASYS [Suspect]
     Active Substance: PEGINTERFERON ALFA-2A
     Indication: CHRONIC HEPATITIS C
     Route: 058
     Dates: start: 20130210
  3. COPEGUS [Suspect]
     Active Substance: RIBAVIRIN
     Dosage: 4 PILLS ARE TAKEN IN THE MORNING.
     Route: 048
     Dates: end: 20131208
  4. COPEGUS [Suspect]
     Active Substance: RIBAVIRIN
     Route: 048
  5. PEGASYS [Suspect]
     Active Substance: PEGINTERFERON ALFA-2A
     Route: 058
     Dates: start: 20130523, end: 20131208
  6. COPEGUS [Suspect]
     Active Substance: RIBAVIRIN
     Indication: CHRONIC HEPATITIS C
     Dosage: DAILY DIVIDED DOSES 600/400
     Route: 048
     Dates: start: 20130210
  7. COPEGUS [Suspect]
     Active Substance: RIBAVIRIN
     Dosage: DIVIDED DOSE(400/400)
     Route: 048
  8. COPEGUS [Suspect]
     Active Substance: RIBAVIRIN
     Dosage: 2 PILLS IN THE MORNING ONLY
     Route: 048
  9. INCIVEK [Suspect]
     Active Substance: TELAPREVIR
     Indication: CHRONIC HEPATITIS C
     Route: 065
     Dates: start: 20130210, end: 20130505

REACTIONS (11)
  - Pruritus [Unknown]
  - Rash [Unknown]
  - Platelet count decreased [Unknown]
  - Pain in extremity [Unknown]
  - Peripheral swelling [Unknown]
  - Rash generalised [Unknown]
  - Anaemia [Recovered/Resolved]
  - White blood cell count decreased [Unknown]
  - Oedema peripheral [Unknown]
  - Insomnia [Unknown]
  - Arthralgia [Unknown]

NARRATIVE: CASE EVENT DATE: 20130518
